FAERS Safety Report 5148084-X (Version None)
Quarter: 2006Q4

REPORT INFORMATION
  Report Type: 
  Country: None (occurrence: None)
  Receive Date: 20061110
  Receipt Date: 20061031
  Transmission Date: 20070319
  Serious: Yes (Other)
  Sender: FDA-Public Use
  Company Number: PHBS2006FR17239

PATIENT
  Age: 47 Year
  Sex: Male

DRUGS (2)
  1. STEROIDS NOS [Suspect]
  2. CYCLOSPORINE [Suspect]
     Indication: RENAL TRANSPLANT

REACTIONS (7)
  - CHRONIC ALLOGRAFT NEPHROPATHY [None]
  - HAEMODIALYSIS [None]
  - MELANOCYTIC NAEVUS [None]
  - NEUROENDOCRINE CARCINOMA OF THE SKIN [None]
  - SKIN NEOPLASM EXCISION [None]
  - SKIN NODULE [None]
  - TRANSPLANT REJECTION [None]
